FAERS Safety Report 16412648 (Version 1)
Quarter: 2019Q2

REPORT INFORMATION
  Report Type: Spontaneous
  Country: JP (occurrence: JP)
  Receive Date: 20190611
  Receipt Date: 20190611
  Transmission Date: 20190711
  Serious: Yes (Other)
  Sender: FDA-Public Use
  Company Number: JP-AMGEN-JPNSP2019092337

PATIENT
  Age: 75 Year
  Sex: Female

DRUGS (1)
  1. ENBREL [Suspect]
     Active Substance: ETANERCEPT
     Indication: PRODUCT USED FOR UNKNOWN INDICATION
     Dosage: 50 MG, WEEKLY
     Route: 065

REACTIONS (7)
  - Cardiac disorder [Unknown]
  - Arrhythmia [Unknown]
  - Malaise [Unknown]
  - Palpitations [Unknown]
  - Fatigue [Unknown]
  - Chest pain [Unknown]
  - Arthritis infective [Unknown]
